FAERS Safety Report 7412496-1 (Version None)
Quarter: 2011Q2

REPORT INFORMATION
  Report Type: 
  Country: None (occurrence: None)
  Receive Date: 20110405
  Receipt Date: 20110317
  Transmission Date: 20111010
  Serious: Yes (Death)
  Sender: FDA-Public Use
  Company Number: 2011P005357

PATIENT
  Age: 34 Year
  Sex: Female

DRUGS (1)
  1. ALPRAZOLAM [Suspect]
     Dosage: PO
     Route: 048

REACTIONS (3)
  - RESPIRATORY ARREST [None]
  - SUICIDAL IDEATION [None]
  - CARDIAC ARREST [None]
